FAERS Safety Report 4561099-5 (Version None)
Quarter: 2005Q1

REPORT INFORMATION
  Report Type: 
  Country: None (occurrence: None)
  Receive Date: 20050121
  Receipt Date: 20050112
  Transmission Date: 20050727
  Serious: Yes (Death, Hospitalization)
  Sender: FDA-Public Use
  Company Number: 163-20785-05010237

PATIENT
  Age: 64 Year
  Sex: Female

DRUGS (3)
  1. THALOMID [Suspect]
     Indication: MULTIPLE MYELOMA
     Dosage: 200 MG  DAILY, ORAL
     Route: 048
     Dates: start: 20040715, end: 20050101
  2. NEXIUM [Concomitant]
  3. PAXIL [Concomitant]

REACTIONS (9)
  - ACIDOSIS [None]
  - ACUTE ABDOMEN [None]
  - FEBRILE NEUTROPENIA [None]
  - HYPOTENSION [None]
  - INTESTINAL ANGINA [None]
  - INTESTINAL INFARCTION [None]
  - INTESTINAL ISCHAEMIA [None]
  - SEPSIS [None]
  - WHITE BLOOD CELL COUNT DECREASED [None]
